FAERS Safety Report 4599559-3 (Version None)
Quarter: 2005Q1

REPORT INFORMATION
  Report Type: 
  Country: None (occurrence: None)
  Receive Date: 20050307
  Receipt Date: 20050301
  Transmission Date: 20050727
  Serious: Yes (Death, Life-Threatening, Other)
  Sender: FDA-Public Use
  Company Number: 200511910GDDC

PATIENT
  Age: 33 Month
  Sex: Female

DRUGS (4)
  1. DESMOPRESSIN [Suspect]
     Indication: HYPOPITUITARISM
     Route: 048
     Dates: start: 20020101, end: 20040824
  2. HYDROCORTISONE [Concomitant]
     Indication: HYPOPITUITARISM
  3. THYROXINE SODIUM [Concomitant]
     Indication: HYPOPITUITARISM
  4. HUMAN GROWTH HORMONE, RECOMBINANT [Concomitant]
     Indication: HYPOPITUITARISM
     Dosage: DOSE: UNK

REACTIONS (20)
  - BLOOD GLUCOSE DECREASED [None]
  - BLOOD OSMOLARITY DECREASED [None]
  - BLOOD PRESSURE SYSTOLIC DECREASED [None]
  - BLOOD SODIUM INCREASED [None]
  - BRAIN HYPOXIA [None]
  - CEREBRAL ISCHAEMIA [None]
  - CHOREOATHETOSIS [None]
  - CONVULSION [None]
  - DIARRHOEA HAEMORRHAGIC [None]
  - DYSTONIA [None]
  - ELECTROLYTE IMBALANCE [None]
  - HYPONATRAEMIA [None]
  - INFECTION [None]
  - MEDICATION ERROR [None]
  - MUSCULOSKELETAL STIFFNESS [None]
  - NERVOUS SYSTEM DISORDER [None]
  - OVERDOSE [None]
  - POSTURING [None]
  - TREMOR [None]
  - VOMITING [None]
